FAERS Safety Report 9462864 (Version 2)
Quarter: 2013Q3

REPORT INFORMATION
  Report Type: Spontaneous
  Country: AR (occurrence: AR)
  Receive Date: 20130816
  Receipt Date: 20130917
  Transmission Date: 20140515
  Serious: Yes (Hospitalization, Other)
  Sender: FDA-Public Use
  Company Number: PHHY2013AR084008

PATIENT
  Sex: 0

DRUGS (1)
  1. TASIGNA [Suspect]
     Route: 048

REACTIONS (3)
  - Liver disorder [Unknown]
  - Transaminases increased [Unknown]
  - Pancreatitis [Recovered/Resolved]
